FAERS Safety Report 9236810 (Version 2)
Quarter: 2013Q2

REPORT INFORMATION
  Report Type: Spontaneous
  Country: US (occurrence: US)
  Receive Date: 20130417
  Receipt Date: 20130418
  Transmission Date: 20140414
  Serious: No
  Sender: FDA-Public Use
  Company Number: US-TEVA-398103USA

PATIENT
  Age: 51 Year
  Sex: Male
  Weight: 86.71 kg

DRUGS (2)
  1. TREANDA [Suspect]
     Indication: MANTLE CELL LYMPHOMA
     Dates: start: 20100209, end: 20100311
  2. ALBUTEROL [Concomitant]
     Indication: ASTHMA

REACTIONS (1)
  - Vascular wall hypertrophy [Unknown]
